FAERS Safety Report 7292904-X (Version None)
Quarter: 2011Q1

REPORT INFORMATION
  Report Type: 
  Country: None (occurrence: None)
  Receive Date: 20110215
  Receipt Date: 20110208
  Transmission Date: 20110831
  Serious: Yes (Death, Life-Threatening, Hospitalization)
  Sender: FDA-Public Use
  Company Number: US-CELGENEUS-163-21880-11010785

PATIENT
  Sex: Male

DRUGS (2)
  1. REVLIMID [Suspect]
     Route: 048
     Dates: start: 20101214
  2. REVLIMID [Suspect]
     Route: 048
     Dates: end: 20110101

REACTIONS (5)
  - OEDEMA PERIPHERAL [None]
  - MYELODYSPLASTIC SYNDROME [None]
  - PNEUMONIA [None]
  - CARDIAC FAILURE CONGESTIVE [None]
  - RASH [None]
